FAERS Safety Report 7155600-5 (Version None)
Quarter: 2010Q4

REPORT INFORMATION
  Report Type: 
  Country: None (occurrence: None)
  Receive Date: 20101214
  Receipt Date: 20091118
  Transmission Date: 20110411
  Serious: No
  Sender: FDA-Public Use
  Company Number: US-AMGEN-KDL375301

PATIENT

DRUGS (4)
  1. ENBREL [Suspect]
     Indication: PRODUCT USED FOR UNKNOWN INDICATION
     Dosage: 50 MG, 2 TIMES/WK
     Route: 058
  2. IBUPROFEN [Concomitant]
     Dosage: 200 MG, UNK
  3. CLOBETASOL [Concomitant]
     Dosage: UNK UNK, UNK
  4. IRON [Concomitant]
     Dosage: 25 MG, UNK

REACTIONS (3)
  - FATIGUE [None]
  - HEADACHE [None]
  - INJECTION SITE PAIN [None]
